FAERS Safety Report 24066036 (Version 1)
Quarter: 2024Q3

REPORT INFORMATION
  Report Type: Spontaneous
  Country: US (occurrence: None)
  Receive Date: 20240709
  Receipt Date: 20240709
  Transmission Date: 20241017
  Serious: No
  Sender: Public
  Company Number: None

PATIENT
  Age: 55 Year

DRUGS (1)
  1. HADLIMA [Suspect]
     Active Substance: ADALIMUMAB-BWWD
     Indication: Rheumatoid arthritis
     Dosage: 40MG/0.4ML EVERY OTHER WEEK SUBCUTANEOUS?
     Dates: start: 20240420

REACTIONS (3)
  - Post procedural complication [None]
  - Contusion [None]
  - Cyanosis [None]
